FAERS Safety Report 5824543-9 (Version None)
Quarter: 2008Q3

REPORT INFORMATION
  Report Type: 
  Country: None (occurrence: None)
  Receive Date: 20080728
  Receipt Date: 20080716
  Transmission Date: 20090109
  Serious: Yes (Hospitalization, Disabling)
  Sender: FDA-Public Use
  Company Number: ES-ROCHE-573704

PATIENT
  Sex: Female
  Weight: 54 kg

DRUGS (3)
  1. CAPECITABINE [Suspect]
     Dosage: FREQUENCY: 14/21 DAYS. THERAPY WAS PERMANENTLY DISCONTINUED ON 15 JULY.DOSAGE FORM REPORTED AS PILLS
     Route: 048
     Dates: start: 20080311, end: 20080623
  2. OXALIPLATIN [Suspect]
     Dosage: THERAPY WAS PERMANENTLY DISCONTINUED ON 15 JULY 2008.
     Route: 042
     Dates: start: 20080311, end: 20080603
  3. BEVACIZUMAB [Suspect]
     Dosage: THERAPY WAS PERMANENTLY DISCONTINUED ON 15 JULY 2008.
     Route: 042
     Dates: start: 20080311, end: 20080603

REACTIONS (1)
  - HEPATOTOXICITY [None]
